FAERS Safety Report 7087840-8 (Version None)
Quarter: 2010Q4

REPORT INFORMATION
  Report Type: 
  Country: None (occurrence: None)
  Receive Date: 20101108
  Receipt Date: 20101026
  Transmission Date: 20110411
  Serious: Yes (Death)
  Sender: FDA-Public Use
  Company Number: US-JNJFOC-20101007660

PATIENT
  Age: 11 Year
  Sex: Male

DRUGS (1)
  1. INFLIXIMAB, RECOMBINANT [Suspect]
     Indication: CROHN'S DISEASE
     Route: 042

REACTIONS (8)
  - COAGULOPATHY [None]
  - FOLLICULITIS [None]
  - HEPATIC FAILURE [None]
  - HEPATIC FIBROSIS [None]
  - HEPATIC NEOPLASM [None]
  - HEPATITIS [None]
  - HEPATOSPLENOMEGALY [None]
  - NATURAL KILLER-CELL LYMPHOBLASTIC LYMPHOMA [None]
